FAERS Safety Report 11173754 (Version 4)
Quarter: 2015Q3

REPORT INFORMATION
  Report Type: Report from Study
  Country: BR (occurrence: BR)
  Receive Date: 20150609
  Receipt Date: 20150713
  Transmission Date: 20151125
  Serious: Yes (Other)
  Sender: FDA-Public Use
  Company Number: BR-BRISTOL-MYERS SQUIBB COMPANY-BMS-2015-034750

PATIENT
  Age: 58 Year
  Sex: Male
  Weight: 61 kg

DRUGS (1)
  1. CETUXIMAB [Suspect]
     Active Substance: CETUXIMAB
     Indication: COLORECTAL CANCER
     Dosage: UNK
     Route: 042
     Dates: start: 20150423

REACTIONS (11)
  - Headache [Unknown]
  - Skin exfoliation [Unknown]
  - Fatigue [Unknown]
  - Skin reaction [Unknown]
  - Paraesthesia [Unknown]
  - Asthenia [Unknown]
  - Decreased appetite [Unknown]
  - Nausea [Unknown]
  - Acne [Unknown]
  - Abasia [Unknown]
  - Peripheral coldness [Unknown]

NARRATIVE: CASE EVENT DATE: 201504
